FAERS Safety Report 9268203 (Version 1)
Quarter: 2013Q2

REPORT INFORMATION
  Report Type: Report from Study
  Country: DE (occurrence: DE)
  Receive Date: 20130502
  Receipt Date: 20130502
  Transmission Date: 20140414
  Serious: Yes (Hospitalization, Other)
  Sender: FDA-Public Use
  Company Number: DE-B.I. PHARMACEUTICALS,INC./RIDGEFIELD-2013-DE-01232DE

PATIENT
  Age: 21 Year
  Sex: Male
  Weight: 75 kg

DRUGS (4)
  1. MICARDIS [Suspect]
     Dosage: 7 ANZ
     Route: 048
     Dates: start: 20130424, end: 20130424
  2. TOREM [Suspect]
     Dosage: 30 ANZ
     Route: 048
     Dates: start: 20130424, end: 20130424
  3. LOSARTAN [Suspect]
     Dosage: 14 ANZ
     Route: 048
     Dates: start: 20130424, end: 20130424
  4. METFORMIN [Suspect]
     Dosage: 12 ANZ
     Route: 048
     Dates: start: 20130424, end: 20130424

REACTIONS (4)
  - Overdose [Unknown]
  - Nausea [Unknown]
  - Dizziness [Unknown]
  - Tachycardia [Unknown]
